FAERS Safety Report 9925367 (Version 4)
Quarter: 2014Q3

REPORT INFORMATION
  Report Type: Spontaneous
  Country: JP (occurrence: JP)
  Receive Date: 20140226
  Receipt Date: 20140909
  Transmission Date: 20150326
  Serious: Yes (Other)
  Sender: FDA-Public Use
  Company Number: JP-PFIZER INC-2014054213

PATIENT
  Age: 80 Year
  Sex: Male
  Weight: 79 kg

DRUGS (8)
  1. LANSOPRAZOL [Concomitant]
     Active Substance: LANSOPRAZOLE
     Dosage: 15 MG, 1X/DAY
     Route: 048
  2. NEUROTROPIN [Concomitant]
     Active Substance: NEUROTROPIN
     Dosage: 3.6 IU, 1X/DAY
     Route: 042
  3. CHOREI-TO [Concomitant]
     Dosage: 2 G, 3X/DAY
     Route: 048
  4. PALUX [Concomitant]
     Dosage: 10 UG, 1X/DAY
     Route: 042
  5. LYRICA [Suspect]
     Active Substance: PREGABALIN
     Dosage: UNK
     Route: 048
  6. SOLANAX [Suspect]
     Active Substance: ALPRAZOLAM
     Dosage: UNK
     Route: 048
  7. FLIVAS [Concomitant]
     Active Substance: NAFTOPIDIL
     Dosage: 75 MG, 1X/DAY
     Route: 048
  8. FUROSEMIDE. [Concomitant]
     Active Substance: FUROSEMIDE
     Dosage: 10 MG, 3X/DAY
     Route: 048

REACTIONS (1)
  - White blood cell count decreased [Not Recovered/Not Resolved]
